FAERS Safety Report 7983960 (Version 5)
Quarter: 2013Q4

REPORT INFORMATION
  Report Type: Report from Study
  Country: US (occurrence: US)
  Receive Date: 20110609
  Receipt Date: 20131111
  Transmission Date: 20140711
  Serious: Yes (Other)
  Sender: FDA-Public Use
  Company Number: PHHO2011US09522

PATIENT
  Age: 19 Year
  Sex: Female
  Weight: 47.4 kg

DRUGS (1)
  1. ILARIS [Suspect]
     Indication: DRUG LEVEL
     Dosage: 150 MG/ML, ONCE/SINGLE
     Route: 058
     Dates: start: 20110122, end: 20110122

REACTIONS (1)
  - Neutropenia [Recovering/Resolving]
